FAERS Safety Report 23882485 (Version 3)
Quarter: 2024Q2

REPORT INFORMATION
  Report Type: Report from Study
  Country: US (occurrence: US)
  Receive Date: 20240522
  Receipt Date: 20240612
  Transmission Date: 20240716
  Serious: No
  Sender: FDA-Public Use
  Company Number: US-AstraZeneca-CH-00627062A

PATIENT
  Age: 81 Year
  Sex: Male

DRUGS (1)
  1. SOLIRIS [Suspect]
     Active Substance: ECULIZUMAB
     Indication: Product used for unknown indication
     Dosage: UNK
     Route: 065
     Dates: start: 20240514

REACTIONS (8)
  - Fatigue [Unknown]
  - Somnolence [Unknown]
  - Dizziness [Unknown]
  - Dysstasia [Unknown]
  - Feeling abnormal [Unknown]
  - Speech disorder [Not Recovered/Not Resolved]
  - Nervousness [Unknown]
  - Dysphagia [Unknown]

NARRATIVE: CASE EVENT DATE: 20240515
